FAERS Safety Report 7769781-3 (Version None)
Quarter: 2011Q3

REPORT INFORMATION
  Report Type: 
  Country: None (occurrence: None)
  Receive Date: 20110922
  Receipt Date: 20100412
  Transmission Date: 20111222
  Serious: Yes (Other)
  Sender: FDA-Public Use
  Company Number: US-ASTRAZENECA-2009UW07584

PATIENT
  Age: 18968 Day
  Sex: Male
  Weight: 131.5 kg

DRUGS (3)
  1. TRAZODONE HYDROCHLORIDE [Concomitant]
     Dosage: 100-150 MG QHS AS NEEDED
     Dates: start: 20070122
  2. SEROQUEL [Suspect]
     Dosage: 200-1200 MG
     Route: 048
     Dates: start: 20040217
  3. LEXAPRO [Concomitant]
     Dates: start: 20040421

REACTIONS (2)
  - ERECTILE DYSFUNCTION [None]
  - TYPE 2 DIABETES MELLITUS [None]
